FAERS Safety Report 7048400-8 (Version None)
Quarter: 2010Q4

REPORT INFORMATION
  Report Type: 
  Country: None (occurrence: None)
  Receive Date: 20101014
  Receipt Date: 20101014
  Transmission Date: 20110411
  Serious: Yes (Life-Threatening, Hospitalization)
  Sender: FDA-Public Use
  Company Number: None

PATIENT
  Age: 39 Year
  Sex: Male
  Weight: 65.7716 kg

DRUGS (2)
  1. CELEXA [Suspect]
     Indication: ADJUSTMENT DISORDER
     Dosage: 20MG ONCE PER DAY PO
     Route: 048
     Dates: start: 20100630, end: 20100706
  2. CELEXA [Suspect]
     Indication: DEPRESSION
     Dosage: 20MG ONCE PER DAY PO
     Route: 048
     Dates: start: 20100630, end: 20100706

REACTIONS (1)
  - SUICIDE ATTEMPT [None]
